FAERS Safety Report 18174123 (Version 1)
Quarter: 2020Q3

REPORT INFORMATION
  Report Type: Spontaneous
  Country: US (occurrence: US)
  Receive Date: 20200819
  Receipt Date: 20200819
  Transmission Date: 20201103
  Serious: Yes (Life-Threatening, Hospitalization, Disabling, Other)
  Sender: FDA-Public Use
  Company Number: None

PATIENT
  Age: 64 Year
  Sex: Male
  Weight: 90 kg

DRUGS (6)
  1. AMLODIPINE [Concomitant]
     Active Substance: AMLODIPINE BESYLATE
  2. NEXIUM [Concomitant]
     Active Substance: ESOMEPRAZOLE MAGNESIUM
  3. HEPARIN [Suspect]
     Active Substance: HEPARIN SODIUM
     Indication: CATHETERISATION CARDIAC
     Dates: start: 20180802, end: 20180802
  4. VIT D [Concomitant]
     Active Substance: VITAMIN D NOS
  5. VIT B COMPLEX + C [Concomitant]
  6. CENTRUM VIT [Concomitant]
     Active Substance: VITAMINS

REACTIONS (3)
  - Haemorrhagic stroke [None]
  - Amnesia [None]
  - Fatigue [None]

NARRATIVE: CASE EVENT DATE: 20180803
